FAERS Safety Report 8759076 (Version 3)
Quarter: 2013Q1

REPORT INFORMATION
  Report Type: Spontaneous
  Country: US (occurrence: US)
  Receive Date: 20120829
  Receipt Date: 20130202
  Transmission Date: 20140127
  Serious: No
  Sender: FDA-Public Use
  Company Number: US-009507513-1208USA000591

PATIENT
  Age: 65 Year
  Sex: Male

DRUGS (1)
  1. PROVENTIL [Suspect]
     Indication: DYSPNOEA
     Dosage: 3 DF, PRN
     Route: 055

REACTIONS (6)
  - Dyspnoea [Recovering/Resolving]
  - Anxiety [Recovering/Resolving]
  - Intentional drug misuse [Unknown]
  - Product quality issue [Unknown]
  - Drug dose omission [Unknown]
  - Product container issue [Unknown]
